FAERS Safety Report 7168217-3 (Version None)
Quarter: 2010Q4

REPORT INFORMATION
  Report Type: 
  Country: None (occurrence: None)
  Receive Date: 20101216
  Receipt Date: 20101130
  Transmission Date: 20110411
  Serious: No
  Sender: FDA-Public Use
  Company Number: US-B.I. PHARMACEUTICALS,INC./RIDGEFIELD-2010-BP-13618BP

PATIENT
  Age: 74 Year
  Sex: Male

DRUGS (9)
  1. PRADAXA [Suspect]
     Indication: CEREBROVASCULAR ACCIDENT PROPHYLAXIS
     Dosage: 300 MG
     Route: 048
     Dates: start: 20101122
  2. PRADAXA [Suspect]
     Indication: ATRIAL FIBRILLATION
  3. METOPROLOL [Suspect]
     Indication: HYPERTENSION
     Dosage: 150 MG
     Route: 048
     Dates: start: 20101120
  4. ASCORBIC ACID [Concomitant]
     Indication: PROPHYLAXIS
  5. MULTI VIT [Concomitant]
     Indication: PROPHYLAXIS
  6. BENICAR [Concomitant]
     Indication: CARDIAC DISORDER
     Dosage: 10 MG
  7. FEXOFENADINE HCL [Concomitant]
     Indication: MULTIPLE ALLERGIES
     Dosage: 180 MG
  8. ASPIRIN [Concomitant]
     Indication: PROPHYLAXIS
  9. ALLOPURINOL [Concomitant]
     Indication: GOUT

REACTIONS (1)
  - INSOMNIA [None]
